FAERS Safety Report 8959373 (Version 1)
Quarter: 2012Q4

REPORT INFORMATION
  Report Type: 
  Country: US (occurrence: US)
  Receive Date: 20121212
  Receipt Date: 20121212
  Transmission Date: 20130627
  Serious: Yes (Other)
  Sender: FDA-Public Use
  Company Number: US-BAYER-2012-128675

PATIENT
  Age: 39 Year
  Sex: Female
  Weight: 64.4 kg

DRUGS (3)
  1. NATAZIA [Suspect]
     Indication: PRODUCT USED FOR UNKNOWN INDICATION
     Dosage: UNK
  2. LUPRON [Suspect]
     Indication: FIBROIDS
     Dosage: 11.25 mg, UNK
     Route: 030
     Dates: start: 201109, end: 201203
  3. ZANAFLEX [Concomitant]
     Dosage: 8 mg, HS

REACTIONS (4)
  - Polycystic ovaries [None]
  - Uterine leiomyoma [None]
  - Menorrhagia [None]
  - Pain [None]
